FAERS Safety Report 8979505 (Version 4)
Quarter: 2014Q1

REPORT INFORMATION
  Report Type: Report from Study
  Country: US (occurrence: US)
  Receive Date: 20121221
  Receipt Date: 20140307
  Transmission Date: 20141002
  Serious: Yes (Hospitalization)
  Sender: FDA-Public Use
  Company Number: US-JNJFOC-20121205620

PATIENT
  Age: 64 Year
  Sex: Male
  Weight: 102.06 kg

DRUGS (2)
  1. SIMPONI [Suspect]
     Indication: PSORIATIC ARTHROPATHY
     Route: 058
     Dates: start: 20120224, end: 20120802
  2. ADVIL [Concomitant]
     Indication: MYALGIA

REACTIONS (10)
  - Staphylococcal bacteraemia [Recovered/Resolved]
  - Staphylococcal abscess [Recovered/Resolved]
  - Venous thrombosis limb [Unknown]
  - Abscess [Recovered/Resolved]
  - Injection site cellulitis [Unknown]
  - Sacroiliitis [Unknown]
  - Groin abscess [Recovered/Resolved]
  - Intervertebral discitis [Recovered/Resolved]
  - Osteomyelitis [Recovered/Resolved]
  - Urinary tract infection [Unknown]
